FAERS Safety Report 6578308-3 (Version None)
Quarter: 2010Q1

REPORT INFORMATION
  Report Type: 
  Country: None (occurrence: None)
  Receive Date: 20100211
  Receipt Date: 20100209
  Transmission Date: 20100710
  Serious: Yes (Other)
  Sender: FDA-Public Use
  Company Number: D0066027A

PATIENT
  Sex: Female

DRUGS (5)
  1. VIANI [Suspect]
     Indication: ASTHMA
     Dosage: 1BLS TWICE PER DAY
     Route: 055
     Dates: start: 20090301
  2. SINGULAIR [Concomitant]
     Route: 065
     Dates: start: 20090301
  3. OMEP [Concomitant]
     Route: 065
     Dates: start: 20090301
  4. ALBUTEROL [Concomitant]
     Route: 065
  5. L-THYROXIN [Concomitant]
     Route: 065

REACTIONS (7)
  - ASTHMA [None]
  - COUGH [None]
  - INCREASED BRONCHIAL SECRETION [None]
  - OROPHARYNGEAL PAIN [None]
  - PHARYNGEAL OEDEMA [None]
  - PRURITUS [None]
  - THROAT IRRITATION [None]
